FAERS Safety Report 8330090-5 (Version None)
Quarter: 2012Q2

REPORT INFORMATION
  Report Type: 
  Country: None (occurrence: None)
  Receive Date: 20120502
  Receipt Date: 20100106
  Transmission Date: 20120825
  Serious: No
  Sender: FDA-Public Use
  Company Number: US-TEVA-2010000069

PATIENT
  Sex: Female
  Weight: 68.1 kg

DRUGS (3)
  1. NUVIGIL [Suspect]
     Indication: FATIGUE
     Dosage: 150 MILLIGRAM;
     Route: 048
     Dates: start: 20091224, end: 20091225
  2. BETASERON [Concomitant]
     Dates: start: 20070101
  3. MAXALT [Concomitant]

REACTIONS (3)
  - NAUSEA [None]
  - FEELING ABNORMAL [None]
  - MIGRAINE [None]
